FAERS Safety Report 8556740-6 (Version None)
Quarter: 2012Q3

REPORT INFORMATION
  Report Type: 
  Country: None (occurrence: None)
  Receive Date: 20120726
  Receipt Date: 20120726
  Transmission Date: 20120928
  Serious: Yes (Hospitalization)
  Sender: FDA-Public Use
  Company Number: None

PATIENT
  Sex: Male
  Weight: 79.3795 kg

DRUGS (1)
  1. BRILINTA [Suspect]
     Indication: CORONARY ARTERIAL STENT INSERTION
     Dosage: 90 MG, TWICE DAILY, PO
     Route: 048

REACTIONS (3)
  - CHROMATURIA [None]
  - HAEMATURIA [None]
  - URINARY BLADDER HAEMORRHAGE [None]
